FAERS Safety Report 5108903-X (Version None)
Quarter: 2006Q3

REPORT INFORMATION
  Report Type: 
  Country: None (occurrence: None)
  Receive Date: 20060731
  Receipt Date: 20060502
  Transmission Date: 20061208
  Serious: No
  Sender: FDA-Public Use
  Company Number: 2006PV013169

PATIENT
  Age: 59 Year
  Sex: Female
  Weight: 93.8946 kg

DRUGS (8)
  1. BYETTA [Suspect]
     Indication: DIABETES MELLITUS NON-INSULIN-DEPENDENT
     Dosage: 10 MCG ; 5 MCG : BID;SC
     Route: 058
     Dates: start: 20060201, end: 20060301
  2. BYETTA [Suspect]
     Indication: DIABETES MELLITUS NON-INSULIN-DEPENDENT
     Dosage: 10 MCG ; 5 MCG : BID;SC
     Route: 058
     Dates: start: 20060301
  3. COUMADIN [Concomitant]
  4. ZESTRIL [Concomitant]
  5. ZEBETA [Concomitant]
  6. LIPITOR [Concomitant]
  7. NIASAN [Concomitant]
  8. PREVACID [Concomitant]

REACTIONS (6)
  - BLOOD CHOLESTEROL INCREASED [None]
  - BLOOD TRIGLYCERIDES INCREASED [None]
  - DECREASED APPETITE [None]
  - HIGH DENSITY LIPOPROTEIN DECREASED [None]
  - INCREASED APPETITE [None]
  - WEIGHT DECREASED [None]
